FAERS Safety Report 8538121-4 (Version None)
Quarter: 2012Q3

REPORT INFORMATION
  Report Type: 
  Country: None (occurrence: None)
  Receive Date: 20120725
  Receipt Date: 20110915
  Transmission Date: 20120928
  Serious: Yes (Other)
  Sender: FDA-Public Use
  Company Number: PHHY2011BE101005

PATIENT
  Sex: Female

DRUGS (1)
  1. EXTAVIA [Suspect]
     Indication: MULTIPLE SCLEROSIS
     Dosage: UNK
     Dates: start: 20100824

REACTIONS (4)
  - DIABETES MELLITUS [None]
  - INJECTION SITE PAIN [None]
  - ERYTHEMA [None]
  - VISUAL ACUITY REDUCED [None]
